FAERS Safety Report 25825104 (Version 2)
Quarter: 2025Q3

REPORT INFORMATION
  Report Type: Spontaneous
  Country: EU (occurrence: EU)
  Receive Date: 20250919
  Receipt Date: 20250923
  Transmission Date: 20251020
  Serious: Yes (Hospitalization, Other)
  Sender: INCYTE
  Company Number: EU-002147023-NVSC2025DE144826

PATIENT

DRUGS (5)
  1. RUXOLITINIB [Suspect]
     Active Substance: RUXOLITINIB
     Indication: Graft versus host disease
     Route: 065
  2. RUXOLITINIB [Suspect]
     Active Substance: RUXOLITINIB
     Indication: Primary myelofibrosis
     Route: 065
  3. RUXOLITINIB [Suspect]
     Active Substance: RUXOLITINIB
     Route: 065
  4. RUXOLITINIB [Suspect]
     Active Substance: RUXOLITINIB
     Dosage: 20 MG, BID (IN THE MORNING AND IN THE EVENING)
     Route: 065
  5. CORTISONE [Suspect]
     Active Substance: CORTISONE
     Indication: Graft versus host disease
     Route: 065

REACTIONS (7)
  - Bone disorder [Unknown]
  - Bronchitis [Unknown]
  - Gait disturbance [Unknown]
  - Increased dose administered [Unknown]
  - Pneumonia [Unknown]
  - Pruritus [Recovered/Resolved]
  - Spinal fracture [Unknown]
